FAERS Safety Report 9070943 (Version 4)
Quarter: 2014Q1

REPORT INFORMATION
  Report Type: Spontaneous
  Country: JP (occurrence: JP)
  Receive Date: 20130129
  Receipt Date: 20140303
  Transmission Date: 20141002
  Serious: Yes (Other)
  Sender: FDA-Public Use
  Company Number: JP-GLAXOSMITHKLINE-B0843615A

PATIENT
  Age: 58 Year
  Sex: Male
  Weight: 56 kg

DRUGS (4)
  1. HEPSERA 10 [Suspect]
     Indication: CHRONIC HEPATITIS B
     Dosage: 10MG PER DAY
     Route: 048
     Dates: start: 200309, end: 20120322
  2. HEPSERA 10 [Suspect]
     Indication: CHRONIC HEPATITIS B
     Dosage: 10MG PER DAY
     Route: 048
     Dates: start: 20120323
  3. ZEFIX 100 [Suspect]
     Indication: CHRONIC HEPATITIS B
     Route: 048
     Dates: start: 200102
  4. ZEFIX 100 [Suspect]
     Indication: CHRONIC HEPATITIS B
     Route: 048
     Dates: start: 200609, end: 201011

REACTIONS (19)
  - Fanconi syndrome [Recovering/Resolving]
  - Osteomalacia [Recovering/Resolving]
  - Multiple fractures [Unknown]
  - Renal impairment [Unknown]
  - Aminoaciduria [Unknown]
  - Hypophosphataemia [Recovered/Resolved]
  - Blood alkaline phosphatase increased [Unknown]
  - Renal disorder [Unknown]
  - Drug resistance [Unknown]
  - Pain in extremity [Recovered/Resolved]
  - Blood phosphorus decreased [Recovered/Resolved]
  - Bone density decreased [Unknown]
  - Urine phosphorus increased [Unknown]
  - Protein urine [Unknown]
  - Proteinuria [Recovered/Resolved]
  - Bone pain [Recovered/Resolved]
  - Hypouricaemia [Unknown]
  - Glycosuria [Recovered/Resolved]
  - Thyroiditis chronic [Unknown]
